FAERS Safety Report 23705043 (Version 2)
Quarter: 2024Q2

REPORT INFORMATION
  Report Type: Spontaneous
  Country: JP (occurrence: JP)
  Receive Date: 20240404
  Receipt Date: 20240416
  Transmission Date: 20240716
  Serious: Yes (Hospitalization, Other)
  Sender: FDA-Public Use
  Company Number: None

PATIENT
  Age: 65 Year
  Sex: Male

DRUGS (8)
  1. TACROLIMUS [Interacting]
     Active Substance: TACROLIMUS
     Indication: Immunosuppressant drug therapy
     Dosage: UNK
     Route: 065
  2. MYCOPHENOLATE MOFETIL [Suspect]
     Active Substance: MYCOPHENOLATE MOFETIL
     Indication: Immunosuppressant drug therapy
     Dosage: UNK
     Route: 065
  3. IMATINIB MESYLATE [Interacting]
     Active Substance: IMATINIB MESYLATE
     Indication: Chronic myeloid leukaemia
     Dosage: 400 MILLIGRAM
     Route: 065
  4. NILOTINIB [Interacting]
     Active Substance: NILOTINIB
     Indication: Chronic myeloid leukaemia
     Dosage: 150 MILLIGRAM, QD (EVERY 1 DAY)
     Route: 065
  5. NILOTINIB [Interacting]
     Active Substance: NILOTINIB
     Dosage: 300 MILLIGRAM, QD (EVERY 1 DAY)
     Route: 065
  6. NILOTINIB [Interacting]
     Active Substance: NILOTINIB
     Dosage: 200 MILLIGRAM, QD (EVERY 1 DAY)
     Route: 065
  7. PREDNISOLONE [Suspect]
     Active Substance: PREDNISOLONE
     Indication: Immunosuppressant drug therapy
     Dosage: UNK
     Route: 065
  8. DASATINIB [Concomitant]
     Active Substance: DASATINIB
     Indication: Chronic myeloid leukaemia
     Dosage: 20 MILLIGRAM, QD (EVERY 1 DAY)
     Route: 065

REACTIONS (6)
  - Drug intolerance [Unknown]
  - Drug interaction [Unknown]
  - Renal impairment [Recovering/Resolving]
  - Pneumonia bacterial [Recovered/Resolved]
  - Pyelonephritis [Recovered/Resolved]
  - Infection [Recovered/Resolved]
